FAERS Safety Report 6914037-1 (Version None)
Quarter: 2010Q3

REPORT INFORMATION
  Report Type: 
  Country: None (occurrence: None)
  Receive Date: 20100809
  Receipt Date: 20100728
  Transmission Date: 20110219
  Serious: Yes (Hospitalization, Other)
  Sender: FDA-Public Use
  Company Number: PHHY2010FR50350

PATIENT
  Sex: Male

DRUGS (8)
  1. NEORAL [Suspect]
     Indication: RENAL TRANSPLANT
     Dosage: 10 MG, BID
     Route: 048
  2. TAREG [Suspect]
     Indication: HYPERTENSION
     Dosage: 40 MG, QD
     Route: 048
     Dates: start: 20100301
  3. CORTANCYL [Suspect]
     Indication: RENAL TRANSPLANT
     Dosage: 5 MG, QD
  4. EZETROL [Suspect]
     Indication: DYSLIPIDAEMIA
     Dosage: 10 MG, QD
     Route: 048
     Dates: start: 20080101
  5. LIPUR [Suspect]
     Indication: DYSLIPIDAEMIA
     Dosage: 450 MG, BID
     Route: 048
     Dates: end: 20091201
  6. LIPUR [Suspect]
     Dosage: 450 MG, TID
     Route: 048
     Dates: start: 20091201, end: 20100618
  7. CELLCEPT [Suspect]
     Indication: RENAL TRANSPLANT
     Dosage: 750 MG, BID
  8. KARDEGIC [Suspect]
     Dosage: 75 MG, QD

REACTIONS (5)
  - ABDOMINAL PAIN [None]
  - LIPASE INCREASED [None]
  - PANCREATITIS ACUTE [None]
  - PYREXIA [None]
  - VOMITING [None]
